FAERS Safety Report 8019188-9 (Version None)
Quarter: 2012Q1

REPORT INFORMATION
  Report Type: 
  Country: None (occurrence: None)
  Receive Date: 20120103
  Receipt Date: 20111227
  Transmission Date: 20120608
  Serious: Yes (Hospitalization)
  Sender: FDA-Public Use
  Company Number: US-B.I. PHARMACEUTICALS,INC./RIDGEFIELD-2011-BP-28809BP

PATIENT
  Age: 79 Year
  Sex: Female
  Weight: 80.7 kg

DRUGS (3)
  1. MOBIC [Suspect]
     Indication: OSTEOARTHRITIS
     Dosage: 7.5 MG
     Route: 048
     Dates: start: 20110907, end: 20111016
  2. MOBIC [Suspect]
     Dosage: 15 MG
     Route: 048
     Dates: start: 20111017, end: 20111021
  3. BLIND (CELECOXIB) [Suspect]
     Indication: RHEUMATOID ARTHRITIS
     Dates: start: 20090519, end: 20090810

REACTIONS (1)
  - GASTRITIS [None]
